FAERS Safety Report 8361744-2 (Version None)
Quarter: 2012Q2

REPORT INFORMATION
  Report Type: 
  Country: None (occurrence: None)
  Receive Date: 20120515
  Receipt Date: 20120507
  Transmission Date: 20120825
  Serious: Yes (Hospitalization, Congenital Anomaly)
  Sender: FDA-Public Use
  Company Number: US-GLAXOSMITHKLINE-A0930625A

PATIENT
  Sex: Male

DRUGS (1)
  1. PAXIL [Suspect]
     Indication: ANXIETY
     Route: 064

REACTIONS (7)
  - TRANSPOSITION OF THE GREAT VESSELS [None]
  - MITRAL VALVE INCOMPETENCE [None]
  - FOETAL EXPOSURE DURING PREGNANCY [None]
  - VENTRICULAR SEPTAL DEFECT [None]
  - AORTIC VALVE INCOMPETENCE [None]
  - PERSISTENT FOETAL CIRCULATION [None]
  - ATRIAL SEPTAL DEFECT [None]
